FAERS Safety Report 4966337-2 (Version None)
Quarter: 2006Q1

REPORT INFORMATION
  Report Type: 
  Country: None (occurrence: None)
  Receive Date: 20060201
  Receipt Date: 20051129
  Transmission Date: 20060701
  Serious: No
  Sender: FDA-Public Use
  Company Number: 2005PV005086

PATIENT
  Age: 51 Year
  Sex: Female
  Weight: 84.8226 kg

DRUGS (3)
  1. BYETTA [Suspect]
     Indication: DIABETES MELLITUS NON-INSULIN-DEPENDENT
     Dosage: SEE IMAGE
     Route: 058
     Dates: start: 20050501, end: 20050601
  2. BYETTA [Suspect]
     Indication: DIABETES MELLITUS NON-INSULIN-DEPENDENT
     Dosage: SEE IMAGE
     Route: 058
     Dates: start: 20050601
  3. METFORMIN [Concomitant]

REACTIONS (9)
  - ABDOMINAL DISTENSION [None]
  - CHROMATURIA [None]
  - DECREASED APPETITE [None]
  - DIARRHOEA [None]
  - FLATULENCE [None]
  - INFREQUENT BOWEL MOVEMENTS [None]
  - INJECTION SITE PAIN [None]
  - THIRST DECREASED [None]
  - WEIGHT DECREASED [None]
